FAERS Safety Report 10904615 (Version 1)
Quarter: 2015Q1

REPORT INFORMATION
  Report Type: Spontaneous
  Country: GB (occurrence: None)
  Receive Date: 20150306
  Receipt Date: 20150306
  Transmission Date: 20150721
  Serious: Yes (Other)
  Sender: FDA-Public Use
  Company Number: 2775107

PATIENT
  Age: 55 Year
  Sex: Male
  Weight: 77 kg

DRUGS (3)
  1. METRONIDAZOLE. [Concomitant]
     Active Substance: METRONIDAZOLE
  2. CIPROFLOXACIN. [Concomitant]
     Active Substance: CIPROFLOXACIN
  3. CEFTRIAXONE SODIUM. [Suspect]
     Active Substance: CEFTRIAXONE SODIUM
     Indication: ANASTOMOTIC LEAK
     Route: 051
     Dates: start: 20150123, end: 20150210

REACTIONS (4)
  - Eating disorder [None]
  - Weight decreased [None]
  - Fluid intake reduced [None]
  - Dysgeusia [None]

NARRATIVE: CASE EVENT DATE: 20150126
